FAERS Safety Report 7198309-4 (Version None)
Quarter: 2010Q4

REPORT INFORMATION
  Report Type: 
  Country: None (occurrence: None)
  Receive Date: 20101223
  Receipt Date: 20101223
  Transmission Date: 20110411
  Serious: Yes (Hospitalization)
  Sender: FDA-Public Use
  Company Number: None

PATIENT
  Age: 88 Year
  Sex: Male
  Weight: 71.6683 kg

DRUGS (1)
  1. LEVAQUIN [Suspect]
     Indication: LOBAR PNEUMONIA
     Dosage: 750 MG DAILY IV
     Route: 042
     Dates: start: 20101217, end: 20101221

REACTIONS (1)
  - GASTROOESOPHAGEAL REFLUX DISEASE [None]
